FAERS Safety Report 6277575-3 (Version None)
Quarter: 2009Q3

REPORT INFORMATION
  Report Type: 
  Country: None (occurrence: None)
  Receive Date: 20090717
  Receipt Date: 20090717
  Transmission Date: 20100115
  Serious: No
  Sender: FDA-Public Use
  Company Number: None

PATIENT
  Age: 74 Year
  Sex: Male
  Weight: 81.6475 kg

DRUGS (1)
  1. JANUVIA [Suspect]
     Indication: TYPE 2 DIABETES MELLITUS
     Dosage: 100MG ONCE DAILY PO
     Route: 048
     Dates: start: 20081212, end: 20090713

REACTIONS (2)
  - ALOPECIA [None]
  - TRICHORRHEXIS [None]
